FAERS Safety Report 23396311 (Version 3)
Quarter: 2024Q1

REPORT INFORMATION
  Report Type: Spontaneous
  Country: JP (occurrence: JP)
  Receive Date: 20240112
  Receipt Date: 20240318
  Transmission Date: 20240409
  Serious: Yes (Other)
  Sender: FDA-Public Use
  Company Number: JP-UCBJ-CD202313057UCBPHAPROD

PATIENT
  Age: 26 Year
  Sex: Female

DRUGS (6)
  1. LEVETIRACETAM [Suspect]
     Active Substance: LEVETIRACETAM
     Indication: Idiopathic generalised epilepsy
     Dosage: 1500 MILLIGRAM
     Route: 048
  2. LEVETIRACETAM [Suspect]
     Active Substance: LEVETIRACETAM
     Indication: Off label use
     Dosage: 1000 MILLIGRAM
     Route: 048
  3. TOPIRAMATE [Suspect]
     Active Substance: TOPIRAMATE
     Indication: Idiopathic generalised epilepsy
     Dosage: 250 MILLIGRAM
  4. TOPIRAMATE [Suspect]
     Active Substance: TOPIRAMATE
     Dosage: 400 MILLIGRAM
  5. PERAMPANEL [Suspect]
     Active Substance: PERAMPANEL
     Indication: Idiopathic generalised epilepsy
     Dosage: 2 MILLIGRAM
  6. CLOBAZAM [Suspect]
     Active Substance: CLOBAZAM
     Indication: Idiopathic generalised epilepsy
     Dosage: 5 MILLIGRAM

REACTIONS (3)
  - Epilepsy [Unknown]
  - Multiple-drug resistance [Unknown]
  - Off label use [Unknown]
